FAERS Safety Report 6826005-9 (Version None)
Quarter: 2010Q3

REPORT INFORMATION
  Report Type: 
  Country: None (occurrence: None)
  Receive Date: 20100706
  Receipt Date: 20100622
  Transmission Date: 20110219
  Serious: Yes (Hospitalization)
  Sender: FDA-Public Use
  Company Number: 014318

PATIENT
  Age: 48 Year
  Sex: Male
  Weight: 100 kg

DRUGS (3)
  1. CIMZIA [Suspect]
     Indication: CROHN'S DISEASE
     Dosage: (400 MG 1X/WEEK SUBCUTANEOUS)
     Route: 058
     Dates: start: 20100304, end: 20100504
  2. OXYCONTIN [Concomitant]
  3. KLONOPIN [Concomitant]

REACTIONS (2)
  - SKIN LACERATION [None]
  - STAPHYLOCOCCAL INFECTION [None]
